FAERS Safety Report 7199837-8 (Version None)
Quarter: 2010Q4

REPORT INFORMATION
  Report Type: 
  Country: None (occurrence: None)
  Receive Date: 20101228
  Receipt Date: 20101223
  Transmission Date: 20110411
  Serious: Yes (Life-Threatening)
  Sender: FDA-Public Use
  Company Number: IT-ROCHE-750111

PATIENT
  Sex: Male

DRUGS (3)
  1. ROCEPHIN [Suspect]
     Indication: BRONCHOPNEUMONIA
     Dosage: FREQUENCY: DAILY
     Route: 042
     Dates: start: 20101110, end: 20101115
  2. LEVOXACIN [Suspect]
     Indication: BRONCHOPNEUMONIA
     Dosage: FREQUENCY:DAILY, BATCH/LOT NUMBER: UNKNOWN
     Route: 042
     Dates: start: 20101110, end: 20101115
  3. STEROID NOS [Concomitant]
     Dosage: DRUG: STERIODS

REACTIONS (1)
  - EPILEPSY [None]
